FAERS Safety Report 20327792 (Version 2)
Quarter: 2022Q1

REPORT INFORMATION
  Report Type: Spontaneous
  Country: US (occurrence: US)
  Receive Date: 20220112
  Receipt Date: 20220114
  Transmission Date: 20220423
  Serious: No
  Sender: FDA-Public Use
  Company Number: US-ELI_LILLY_AND_COMPANY-US202201004127

PATIENT
  Sex: Female

DRUGS (2)
  1. BASAGLAR [Suspect]
     Active Substance: INSULIN GLARGINE
     Indication: Diabetes mellitus
     Dosage: 40 U, BID
     Route: 058
  2. HUMALOG [Suspect]
     Active Substance: INSULIN LISPRO
     Indication: Product used for unknown indication
     Dosage: UNK
     Route: 065

REACTIONS (8)
  - Head injury [Recovering/Resolving]
  - Thinking abnormal [Recovering/Resolving]
  - Post-traumatic amnestic disorder [Recovering/Resolving]
  - Dizziness [Unknown]
  - Eye disorder [Unknown]
  - Blood glucose increased [Unknown]
  - Disturbance in attention [Unknown]
  - Inappropriate schedule of product administration [Not Recovered/Not Resolved]
